FAERS Safety Report 4315116-8 (Version None)
Quarter: 2004Q1

REPORT INFORMATION
  Report Type: 
  Country: None (occurrence: None)
  Receive Date: 20040310
  Receipt Date: 20031209
  Transmission Date: 20041129
  Serious: Yes (Hospitalization)
  Sender: FDA-Public Use
  Company Number: AU-BRISTOL-MYERS SQUIBB COMPANY-12452587

PATIENT
  Age: 71 Year
  Sex: Male

DRUGS (15)
  1. BLINDED: ABATACEPT [Suspect]
     Indication: RHEUMATOID ARTHRITIS
     Route: 042
     Dates: start: 20030311
  2. METHOTREXATE [Suspect]
  3. PREDNISOLONE [Concomitant]
  4. SLOW-K [Concomitant]
  5. FOLIC ACID [Concomitant]
  6. FRUSEMIDE [Concomitant]
  7. SOTALOL HCL [Concomitant]
  8. GLICLAZIDE [Concomitant]
  9. DIAFORMIN [Concomitant]
  10. ESOMEPRAZOLE [Concomitant]
  11. LISINOPRIL [Concomitant]
  12. WARFARIN [Concomitant]
  13. TEMAZEPAM [Concomitant]
     Dosage: NOCTE
  14. TRANSDERM-NITRO [Concomitant]
     Dosage: PATCH
  15. ACETAMINOPHEN W/ CODEINE [Concomitant]

REACTIONS (3)
  - BRONCHOPNEUMONIA [None]
  - DRUG EFFECT DECREASED [None]
  - MYRINGITIS [None]
